FAERS Safety Report 8863290 (Version 1)
Quarter: 2012Q4

REPORT INFORMATION
  Report Type: 
  Country: CH (occurrence: CH)
  Receive Date: 20121025
  Receipt Date: 20121025
  Transmission Date: 20130627
  Serious: Yes (Other)
  Sender: FDA-Public Use
  Company Number: CH-ROCHE-1140667

PATIENT
  Sex: Male

DRUGS (1)
  1. AVASTIN [Suspect]
     Indication: ANAPLASTIC ASTROCYTOMA
     Route: 042
     Dates: start: 201205

REACTIONS (1)
  - Neoplasm progression [Unknown]
